FAERS Safety Report 6005426-0 (Version None)
Quarter: 2008Q4

REPORT INFORMATION
  Report Type: 
  Country: None (occurrence: None)
  Receive Date: 20081217
  Receipt Date: 20081212
  Transmission Date: 20090506
  Serious: Yes (Other)
  Sender: FDA-Public Use
  Company Number: LU-WYE-G01525208

PATIENT
  Sex: Female

DRUGS (1)
  1. EFFEXOR [Suspect]

REACTIONS (3)
  - ATAXIA [None]
  - FOETAL GROWTH RETARDATION [None]
  - HYPOKINESIA NEONATAL [None]
